FAERS Safety Report 7402933-0 (Version None)
Quarter: 2011Q2

REPORT INFORMATION
  Report Type: 
  Country: None (occurrence: None)
  Receive Date: 20110408
  Receipt Date: 20110328
  Transmission Date: 20111010
  Serious: Yes (Hospitalization)
  Sender: FDA-Public Use
  Company Number: AU-JNJFOC-20070605939

PATIENT
  Age: 85 Year
  Sex: Male

DRUGS (10)
  1. VITAMIN B [Concomitant]
  2. PANTOPRAZOLE [Concomitant]
     Dosage: MORE THAN 3 YEARS
  3. CLOPIDOGREL [Concomitant]
     Dosage: MORE THAN 3 YEARS
  4. RAZADYNE ER [Suspect]
     Indication: DEMENTIA
     Route: 065
  5. SIMVASTATIN [Concomitant]
  6. IRBESARTAN [Concomitant]
     Indication: HYPERTENSION
     Dosage: MORE THAN 3 YEARS
  7. RAZADYNE ER [Suspect]
     Dosage: INITIATED 2 YEARS AGO
     Route: 065
  8. PARACETAMOL [Concomitant]
     Dosage: FOR MORE THAN 3 YEARS
  9. CALTRATE [Concomitant]
     Dosage: FOR MORE THAN 3 YEARS
  10. ERGOCALCIFEROL [Concomitant]
     Dosage: MORE THAN 3 YEARS

REACTIONS (32)
  - SYNCOPE [None]
  - NAUSEA [None]
  - AGITATION [None]
  - CHOLINERGIC SYNDROME [None]
  - ELECTROCARDIOGRAM QT PROLONGED [None]
  - HYPOTENSION [None]
  - DIARRHOEA [None]
  - FACE INJURY [None]
  - CEREBRAL ATROPHY [None]
  - LOSS OF CONSCIOUSNESS [None]
  - SINUS BRADYCARDIA [None]
  - CONFUSIONAL STATE [None]
  - VOMITING [None]
  - TOOTH LOSS [None]
  - DIZZINESS [None]
  - DEMENTIA ALZHEIMER'S TYPE [None]
  - SPINAL FRACTURE [None]
  - VENTRICULAR EXTRASYSTOLES [None]
  - VASCULAR DEMENTIA [None]
  - SUPRAVENTRICULAR EXTRASYSTOLES [None]
  - COGNITIVE DISORDER [None]
  - CONDITION AGGRAVATED [None]
  - URINARY INCONTINENCE [None]
  - DEMENTIA [None]
  - ARRHYTHMIA [None]
  - RESTLESSNESS [None]
  - SUPRAVENTRICULAR TACHYCARDIA [None]
  - LACERATION [None]
  - ASTHENIA [None]
  - FALL [None]
  - DELIRIUM [None]
  - INJURY [None]
